FAERS Safety Report 12909061 (Version 2)
Quarter: 2018Q1

REPORT INFORMATION
  Report Type: Spontaneous
  Country: US (occurrence: US)
  Receive Date: 20161103
  Receipt Date: 20180105
  Transmission Date: 20180508
  Serious: No
  Sender: FDA-Public Use
  Company Number: US-JAZZ-2016-US-016913

PATIENT
  Sex: Male

DRUGS (30)
  1. FIBER [Concomitant]
     Active Substance: PSYLLIUM HUSK
  2. PROVEXCV [Concomitant]
     Active Substance: DIETARY SUPPLEMENT
  3. TRIAMTERENE AND HYDROCHLOROTHIAZIDE [Concomitant]
     Active Substance: HYDROCHLOROTHIAZIDE\TRIAMTERENE
  4. CYCLOBENZAPRINE. [Concomitant]
     Active Substance: CYCLOBENZAPRINE
  5. PHYTOMEGA [Concomitant]
  6. ANALPRAM HC [Concomitant]
     Active Substance: HYDROCORTISONE ACETATE\PRAMOXINE HYDROCHLORIDE
  7. BISACODYL EC [Concomitant]
     Active Substance: BISACODYL
  8. HYDROCORTISONE. [Concomitant]
     Active Substance: HYDROCORTISONE
  9. LOPERAMIDE HCL [Concomitant]
     Active Substance: LOPERAMIDE HYDROCHLORIDE
  10. FLORIFY [Concomitant]
  11. MECLIZINE HCL [Concomitant]
     Active Substance: MECLIZINE HYDROCHLORIDE
  12. NAPROXEN SODIUM. [Concomitant]
     Active Substance: NAPROXEN SODIUM
  13. XYREM [Suspect]
     Active Substance: SODIUM OXYBATE
     Indication: NARCOLEPSY
     Dosage: 2.25 G, BID
     Route: 048
     Dates: start: 201608
  14. COENZYME Q10 [Concomitant]
     Active Substance: UBIDECARENONE
  15. CETIRIZINE HCL [Concomitant]
     Active Substance: CETIRIZINE HYDROCHLORIDE
  16. VITAMIN K2 + D3 [Concomitant]
  17. PERCOCET [Concomitant]
     Active Substance: ACETAMINOPHEN\OXYCODONE HYDROCHLORIDE
  18. LIDOCAINE. [Concomitant]
     Active Substance: LIDOCAINE
  19. RITALIN [Concomitant]
     Active Substance: METHYLPHENIDATE HYDROCHLORIDE
  20. CARDIO OMEGA [Concomitant]
  21. CELL WISE [Concomitant]
  22. RECOVER AL [Concomitant]
  23. REPLENEX [Concomitant]
     Active Substance: DIETARY SUPPLEMENT
  24. CAFFEINE. [Concomitant]
     Active Substance: CAFFEINE
  25. NEOSPORIN [Concomitant]
     Active Substance: BACITRACIN ZINC\NEOMYCIN SULFATE\POLYMYXIN B SULFATE
  26. PROAIR RESPICLICK [Concomitant]
     Active Substance: ALBUTEROL SULFATE
  27. CALCIUM +D3 [Concomitant]
     Active Substance: CALCIUM\CHOLECALCIFEROL
  28. FLUTICASONE PROPIONATE. [Concomitant]
     Active Substance: FLUTICASONE PROPIONATE
  29. MULTIVITAMINS [Concomitant]
     Active Substance: VITAMINS
  30. MELATONIN [Concomitant]
     Active Substance: MELATONIN

REACTIONS (3)
  - Agitation [Unknown]
  - Malaise [Recovering/Resolving]
  - Memory impairment [Not Recovered/Not Resolved]

NARRATIVE: CASE EVENT DATE: 2016
